FAERS Safety Report 18444376 (Version 7)
Quarter: 2022Q3

REPORT INFORMATION
  Report Type: Spontaneous
  Country: US (occurrence: US)
  Receive Date: 20201030
  Receipt Date: 20220707
  Transmission Date: 20221027
  Serious: Yes (Other)
  Sender: FDA-Public Use
  Company Number: US-PFIZER INC-2020412783

PATIENT
  Age: 61 Year
  Sex: Male
  Weight: 129.27 kg

DRUGS (1)
  1. NICOTROL [Suspect]
     Active Substance: NICOTINE
     Indication: Smoking cessation therapy
     Dosage: 6 DF, DAILY (USE ONE INHALATION 6 TIMES DAILY)
     Route: 055
     Dates: start: 202001

REACTIONS (4)
  - Neoplasm malignant [Unknown]
  - Drug ineffective [Unknown]
  - Device difficult to use [Unknown]
  - Depressed mood [Unknown]

NARRATIVE: CASE EVENT DATE: 20200101
